FAERS Safety Report 13507185 (Version 1)
Quarter: 2017Q2

REPORT INFORMATION
  Report Type: Report from Study
  Country: None (occurrence: BR)
  Receive Date: 20170503
  Receipt Date: 20170503
  Transmission Date: 20170830
  Serious: Yes (Other)
  Sender: FDA-Public Use
  Company Number: BR-ABBVIE-17K-020-1959077-00

PATIENT
  Age: 43 Year
  Sex: Female
  Weight: 110 kg

DRUGS (4)
  1. HUMIRA [Suspect]
     Active Substance: ADALIMUMAB
     Indication: RHEUMATOID ARTHRITIS
     Route: 058
     Dates: start: 20110101, end: 201702
  2. VITAMIN D3 [Suspect]
     Active Substance: CHOLECALCIFEROL
     Indication: VITAMIN D DECREASED
     Route: 048
     Dates: start: 201701, end: 201702
  3. OSTEONUTRI [Concomitant]
     Indication: OSTEOPOROSIS
     Dosage: FORM STRENGTH: 600 MG CALCIUM + 400 IU VITAMIN D3
     Route: 048
  4. REUQUINOL [Concomitant]
     Active Substance: HYDROXYCHLOROQUINE SULFATE
     Indication: RHEUMATOID ARTHRITIS
     Route: 048

REACTIONS (7)
  - Arthralgia [Not Recovered/Not Resolved]
  - Vitamin D decreased [Unknown]
  - Tonsillar hypertrophy [Recovered/Resolved]
  - Hypoaesthesia [Recovered/Resolved]
  - Hypertension [Recovering/Resolving]
  - Laryngeal oedema [Recovered/Resolved]
  - Gastrooesophageal reflux disease [Recovering/Resolving]

NARRATIVE: CASE EVENT DATE: 201611
